FAERS Safety Report 7471872-1 (Version None)
Quarter: 2011Q2

REPORT INFORMATION
  Report Type: 
  Country: None (occurrence: None)
  Receive Date: 20110511
  Receipt Date: 20100622
  Transmission Date: 20111010
  Serious: No
  Sender: FDA-Public Use
  Company Number: A0866558A

PATIENT
  Age: 53 Year
  Sex: Female

DRUGS (9)
  1. ZOMETA [Concomitant]
  2. NORCO [Concomitant]
  3. TAXOL [Suspect]
     Route: 065
  4. PAIN MEDICATION [Concomitant]
  5. VITAMIN B-12 [Concomitant]
  6. RADIATION [Suspect]
     Route: 065
  7. HERCEPTIN [Suspect]
     Route: 065
  8. ACETAMINOPHEN, ASPIRIN AND CAFFEINE [Concomitant]
  9. TYKERB [Suspect]
     Indication: BREAST CANCER
     Dosage: 5TAB PER DAY
     Route: 048
     Dates: start: 20100331

REACTIONS (10)
  - MUSCULOSKELETAL PAIN [None]
  - DYSPNOEA [None]
  - EXTRASYSTOLES [None]
  - DIARRHOEA [None]
  - BACK PAIN [None]
  - HEART RATE IRREGULAR [None]
  - CHEST DISCOMFORT [None]
  - ADVERSE EVENT [None]
  - CHEST PAIN [None]
  - NEUROPATHY PERIPHERAL [None]
